FAERS Safety Report 21025768 (Version 1)
Quarter: 2022Q2

REPORT INFORMATION
  Report Type: Spontaneous
  Country: US (occurrence: US)
  Receive Date: 20220630
  Receipt Date: 20220630
  Transmission Date: 20220721
  Serious: Yes (Other)
  Sender: FDA-Public Use
  Company Number: US-SUN PHARMACEUTICAL INDUSTRIES LTD-2022R1-342648

PATIENT
  Age: 72 Year
  Sex: Female

DRUGS (2)
  1. ALBUTEROL [Suspect]
     Active Substance: ALBUTEROL
     Indication: Asthma
     Dosage: UNK (180 MICROGRAM)
  2. FLUTICASONE [Suspect]
     Active Substance: FLUTICASONE
     Indication: Asthma
     Dosage: UNK (110 MICROG, 2 PUFFS ONCE DAILY)

REACTIONS (1)
  - Condition aggravated [Unknown]
